FAERS Safety Report 7026498-0 (Version None)
Quarter: 2010Q4

REPORT INFORMATION
  Report Type: 
  Country: None (occurrence: None)
  Receive Date: 20101004
  Receipt Date: 20100928
  Transmission Date: 20110411
  Serious: No
  Sender: FDA-Public Use
  Company Number: US-PFIZER INC-2010123710

PATIENT
  Age: 51 Year
  Sex: Male

DRUGS (2)
  1. XANAX [Suspect]
     Indication: DEPRESSION
     Dosage: UNK
  2. XANAX [Suspect]
     Indication: ANXIETY

REACTIONS (3)
  - EJACULATION FAILURE [None]
  - FRUSTRATION [None]
  - LIBIDO DECREASED [None]
